FAERS Safety Report 7555738-4 (Version None)
Quarter: 2011Q2

REPORT INFORMATION
  Report Type: 
  Country: None (occurrence: None)
  Receive Date: 20110617
  Receipt Date: 20110609
  Transmission Date: 20111010
  Serious: Yes (Other)
  Sender: FDA-Public Use
  Company Number: US-RB-028852-11

PATIENT
  Sex: Female

DRUGS (4)
  1. PROVIGIL [Concomitant]
     Indication: NARCOLEPSY
  2. MIRALAX [Concomitant]
     Indication: CONSTIPATION
     Dosage: DOSING INFORMATION UNKNOWN
  3. SUBOXONE [Suspect]
     Indication: DRUG DEPENDENCE
     Dosage: DOSAGE 16-20 MG DAILY.
     Route: 060
     Dates: start: 20090101
  4. SERTALINE [Concomitant]
     Indication: DEPRESSION

REACTIONS (2)
  - DRUG EXPOSURE DURING PREGNANCY [None]
  - ABORTION SPONTANEOUS [None]
